FAERS Safety Report 4675226-2 (Version None)
Quarter: 2005Q2

REPORT INFORMATION
  Report Type: 
  Country: None (occurrence: None)
  Receive Date: 20050526
  Receipt Date: 20050519
  Transmission Date: 20051028
  Serious: Yes (Other)
  Sender: FDA-Public Use
  Company Number: B0381157A

PATIENT
  Sex: 0

DRUGS (1)
  1. ALBENDAZOLE UNSPECIFIED TABLET (ALBENDAZOLE) [Suspect]

REACTIONS (2)
  - CONVULSION [None]
  - OVERDOSE [None]
